FAERS Safety Report 6636498-8 (Version None)
Quarter: 2010Q1

REPORT INFORMATION
  Report Type: 
  Country: None (occurrence: None)
  Receive Date: 20100226
  Receipt Date: 20090504
  Transmission Date: 20100710
  Serious: Yes (Hospitalization)
  Sender: FDA-Public Use
  Company Number: WAES 0905USA01806

PATIENT
  Sex: Female

DRUGS (3)
  1. PRINIVIL [Suspect]
     Dosage: 10 MG/BID/PO; 10 MG/BID/PO
     Route: 048
     Dates: end: 20040318
  2. PRINIVIL [Suspect]
     Dosage: 10 MG/BID/PO; 10 MG/BID/PO
     Route: 048
     Dates: start: 20040320
  3. HYDRODIURIL [Suspect]
     Dosage: PO
     Route: 048
     Dates: end: 20040318

REACTIONS (1)
  - RENAL FAILURE ACUTE [None]
